FAERS Safety Report 16649448 (Version 1)
Quarter: 2019Q3

REPORT INFORMATION
  Report Type: Report from Study
  Country: FI (occurrence: FI)
  Receive Date: 20190730
  Receipt Date: 20190730
  Transmission Date: 20191004
  Serious: Yes (Hospitalization)
  Sender: FDA-Public Use
  Company Number: FI-SHIRE-FI201806555

PATIENT

DRUGS (9)
  1. TEDUGLUTIDE [Suspect]
     Active Substance: TEDUGLUTIDE
     Indication: SHORT-BOWEL SYNDROME
     Dosage: UNK UNK, 1X/DAY:QD
     Route: 058
     Dates: start: 20170920, end: 20180205
  2. VITAMIN D [Concomitant]
     Active Substance: VITAMIN D NOS
     Indication: SHORT-BOWEL SYNDROME
  3. VITAMIN K [Concomitant]
     Active Substance: PHYTONADIONE
     Indication: SHORT-BOWEL SYNDROME
  4. TEDUGLUTIDE [Suspect]
     Active Substance: TEDUGLUTIDE
     Dosage: UNK UNK, 1X/DAY:QD
     Route: 058
     Dates: start: 20180215
  5. NATRIUM BICARBONAT [Concomitant]
     Indication: PRODUCT USED FOR UNKNOWN INDICATION
  6. NATRIUM CHLORIDUM [Concomitant]
     Active Substance: SODIUM CHLORIDE
     Indication: PRODUCT USED FOR UNKNOWN INDICATION
  7. IMODIUM [Concomitant]
     Active Substance: LOPERAMIDE HYDROCHLORIDE
     Indication: SHORT-BOWEL SYNDROME
  8. VITAMIN A+E [Concomitant]
     Indication: SHORT-BOWEL SYNDROME
  9. KALISOL [Concomitant]
     Indication: SHORT-BOWEL SYNDROME

REACTIONS (1)
  - Renal tubular acidosis [Recovered/Resolved]

NARRATIVE: CASE EVENT DATE: 20180212
